FAERS Safety Report 9018593 (Version 2)
Quarter: 2013Q1

REPORT INFORMATION
  Report Type: Spontaneous
  Country: US (occurrence: US)
  Receive Date: 20130118
  Receipt Date: 20130220
  Transmission Date: 20140127
  Serious: No
  Sender: FDA-Public Use
  Company Number: US-PFIZER INC-2013019125

PATIENT
  Age: 70 Year
  Sex: Female
  Weight: 73.47 kg

DRUGS (5)
  1. ADVIL [Suspect]
     Indication: BURSITIS
     Dosage: 200 MG, DAILY
     Route: 048
     Dates: start: 20130115
  2. ADVIL [Interacting]
     Indication: PAIN IN EXTREMITY
  3. ADVIL [Interacting]
     Indication: ARTHRALGIA
  4. TYLENOL [Interacting]
     Indication: ARTHRITIS
     Dosage: UNK, FIVE TIMES DAILY
     Dates: end: 20130114
  5. PREMPRO [Concomitant]
     Indication: HORMONE LEVEL ABNORMAL
     Dosage: 0.3/1.5MG, DAILY

REACTIONS (2)
  - Drug interaction [Unknown]
  - Tinnitus [Recovered/Resolved]
